FAERS Safety Report 6207181-8 (Version None)
Quarter: 2009Q2

REPORT INFORMATION
  Report Type: 
  Country: None (occurrence: None)
  Receive Date: 20090522
  Receipt Date: 20080827
  Transmission Date: 20091009
  Serious: Yes (Other)
  Sender: FDA-Public Use
  Company Number: 51874

PATIENT
  Sex: Female
  Weight: 48.5349 kg

DRUGS (3)
  1. KETOROLAC TROMETHAMINE [Suspect]
     Indication: MIGRAINE
     Dosage: 60MG IM
     Route: 030
     Dates: start: 20080727, end: 20080818
  2. FIORICET [Concomitant]
  3. ZOVIRAX [Concomitant]

REACTIONS (1)
  - INJECTION SITE REACTION [None]
